FAERS Safety Report 10070603 (Version 1)
Quarter: 2014Q2

REPORT INFORMATION
  Report Type: Spontaneous
  Country: GB (occurrence: GB)
  Receive Date: 20140410
  Receipt Date: 20140410
  Transmission Date: 20141212
  Serious: Yes (Other)
  Sender: FDA-Public Use
  Company Number: PHHY2014GB041018

PATIENT
  Sex: 0

DRUGS (3)
  1. OXALIPLATIN [Suspect]
  2. 5-FLUOROURACIL [Suspect]
  3. SELECTIVE INTERNAL RADIATION THERAPY [Suspect]

REACTIONS (3)
  - Hepatic steatosis [Unknown]
  - Neuropathy peripheral [Unknown]
  - Drug effect incomplete [Unknown]
